FAERS Safety Report 9645010 (Version 1)
Quarter: 2013Q4

REPORT INFORMATION
  Report Type: Spontaneous
  Country: US (occurrence: US)
  Receive Date: 20131025
  Receipt Date: 20131025
  Transmission Date: 20140711
  Serious: No
  Sender: FDA-Public Use
  Company Number: US-PFIZER INC-2013306383

PATIENT
  Sex: Male

DRUGS (1)
  1. CHANTIX [Suspect]
     Indication: SMOKING CESSATION THERAPY
     Dosage: UNK
     Dates: start: 201310

REACTIONS (5)
  - Chest discomfort [Unknown]
  - Gastric disorder [Unknown]
  - Sleep disorder [Unknown]
  - Chills [Unknown]
  - Peripheral coldness [Unknown]
